FAERS Safety Report 5794917-3 (Version None)
Quarter: 2008Q2

REPORT INFORMATION
  Report Type: 
  Country: None (occurrence: None)
  Receive Date: 20080630
  Receipt Date: 20080620
  Transmission Date: 20081010
  Serious: Yes (Other)
  Sender: FDA-Public Use
  Company Number: CO-ALLERGAN-0807880US

PATIENT
  Sex: Female

DRUGS (4)
  1. COMBIGAN [Suspect]
     Indication: GLAUCOMA
     Dosage: UNK, BID
     Route: 047
     Dates: start: 20080301, end: 20080501
  2. PRED F [Concomitant]
     Route: 047
  3. LOTEROFT [Concomitant]
     Dosage: UNK, BID
     Route: 047
  4. COSOPT [Concomitant]
     Dosage: UNK, BID
     Route: 047

REACTIONS (1)
  - IRIDOCYCLITIS [None]
